FAERS Safety Report 9779668 (Version 2)
Quarter: 2013Q4

REPORT INFORMATION
  Report Type: Spontaneous
  Country: US (occurrence: US)
  Receive Date: 20131223
  Receipt Date: 20131230
  Transmission Date: 20140711
  Serious: Yes (Hospitalization, Other)
  Sender: FDA-Public Use
  Company Number: US-ASTRAZENECA-2013SE90754

PATIENT
  Age: 637 Day
  Sex: Male

DRUGS (3)
  1. SYNAGIS [Suspect]
     Route: 030
     Dates: start: 20131115
  2. SYNAGIS [Suspect]
     Route: 030
     Dates: start: 20131213
  3. BUDESONIDE [Concomitant]
     Indication: BRONCHOPULMONARY DYSPLASIA
     Dosage: BID

REACTIONS (2)
  - Status asthmaticus [Unknown]
  - Pneumonia [Unknown]
